FAERS Safety Report 5741253-7 (Version None)
Quarter: 2008Q2

REPORT INFORMATION
  Report Type: 
  Country: None (occurrence: None)
  Receive Date: 20080514
  Receipt Date: 20080430
  Transmission Date: 20081010
  Serious: Yes (Death)
  Sender: FDA-Public Use
  Company Number: 027538

PATIENT
  Age: 52 Year
  Sex: Male

DRUGS (1)
  1. CLARAVIS [Suspect]
     Indication: ACNE
     Dosage: ORAL
     Route: 048
     Dates: start: 20080208

REACTIONS (1)
  - PNEUMONIA [None]
